FAERS Safety Report 10607731 (Version 2)
Quarter: 2015Q1

REPORT INFORMATION
  Report Type: Report from Study
  Country: US (occurrence: US)
  Receive Date: 20141125
  Receipt Date: 20150204
  Transmission Date: 20150720
  Serious: Yes (Other)
  Sender: FDA-Public Use
  Company Number: US-ASTRAZENECA-2014SE86561

PATIENT
  Age: 23414 Day
  Sex: Male

DRUGS (1)
  1. BRILINTA [Suspect]
     Active Substance: TICAGRELOR
     Indication: ACUTE CORONARY SYNDROME
     Route: 048
     Dates: start: 20141109, end: 20141117

REACTIONS (5)
  - Dizziness [Unknown]
  - Dyspnoea [Recovering/Resolving]
  - Gait disturbance [Unknown]
  - Nausea [Unknown]
  - Ataxia [Unknown]

NARRATIVE: CASE EVENT DATE: 20141110
